FAERS Safety Report 9629689 (Version 3)
Quarter: 2013Q4

REPORT INFORMATION
  Report Type: Report from Study
  Country: US (occurrence: US)
  Receive Date: 20131017
  Receipt Date: 20131023
  Transmission Date: 20140711
  Serious: Yes (Hospitalization)
  Sender: FDA-Public Use
  Company Number: US-ROCHE-1275870

PATIENT
  Age: 70 Year
  Sex: Male
  Weight: 54.48 kg

DRUGS (8)
  1. AVASTIN [Suspect]
     Indication: NON-SMALL CELL LUNG CANCER
     Route: 042
     Dates: start: 20130701
  2. AVASTIN [Suspect]
     Route: 042
     Dates: start: 20130813
  3. CARBOPLATIN [Suspect]
     Indication: NON-SMALL CELL LUNG CANCER
     Route: 042
     Dates: start: 20130813
  4. ALIMTA [Suspect]
     Indication: NON-SMALL CELL LUNG CANCER
     Route: 042
     Dates: start: 20130813
  5. PACLITAXEL [Concomitant]
  6. GABAPENTIN [Concomitant]
     Indication: RESTLESS LEGS SYNDROME
  7. TEMAZEPAM [Concomitant]
     Indication: SLEEP DISORDER
  8. BABY ASPIRIN [Concomitant]
     Indication: PAIN

REACTIONS (20)
  - Aggression [Not Recovered/Not Resolved]
  - Mania [Recovering/Resolving]
  - Mental impairment [Recovering/Resolving]
  - Headache [Recovered/Resolved]
  - Nausea [Not Recovered/Not Resolved]
  - Speech disorder [Not Recovered/Not Resolved]
  - Arthralgia [Not Recovered/Not Resolved]
  - Chills [Recovered/Resolved]
  - Diarrhoea [Recovered/Resolved]
  - Pyrexia [Recovered/Resolved]
  - Gait disturbance [Not Recovered/Not Resolved]
  - Convulsion [Recovering/Resolving]
  - Cerebral thrombosis [Recovering/Resolving]
  - Constipation [Not Recovered/Not Resolved]
  - Dysuria [Not Recovered/Not Resolved]
  - Dysuria [Not Recovered/Not Resolved]
  - Haemoglobin decreased [Unknown]
  - Platelet count decreased [Unknown]
  - Disease progression [Not Recovered/Not Resolved]
  - Anaemia [Unknown]
